FAERS Safety Report 9080352 (Version 1)
Quarter: 2013Q1

REPORT INFORMATION
  Report Type: Report from Study
  Country: US (occurrence: US)
  Receive Date: 20130130
  Receipt Date: 20130130
  Transmission Date: 20140127
  Serious: No
  Sender: FDA-Public Use
  Company Number: US-ABBOTT-12P-163-0977162-00

PATIENT
  Age: 60 None
  Sex: Male
  Weight: 104.42 kg

DRUGS (11)
  1. HUMIRA [Suspect]
     Indication: ANKYLOSING SPONDYLITIS
     Route: 058
     Dates: start: 20120810
  2. ATENOLOL [Concomitant]
     Indication: HYPERTENSION
  3. MICARDIS [Concomitant]
     Indication: HYPERTENSION
  4. ALTACE [Concomitant]
     Indication: HYPERTENSION
  5. BENTYL [Concomitant]
     Indication: GASTROOESOPHAGEAL REFLUX DISEASE
  6. BENTYL [Concomitant]
     Indication: IRRITABLE BOWEL SYNDROME
  7. PEPCID AC [Concomitant]
     Indication: GASTROOESOPHAGEAL REFLUX DISEASE
  8. ZIRTEC [Concomitant]
     Indication: HYPERSENSITIVITY
  9. UNNAMED SKIN CREAM [Concomitant]
     Indication: DRY SKIN
  10. UNNAMED SKIN CREAM [Concomitant]
     Indication: DRY SKIN
  11. FLONASE [Concomitant]
     Indication: HYPERSENSITIVITY

REACTIONS (6)
  - Gastrointestinal motility disorder [Not Recovered/Not Resolved]
  - Fatigue [Unknown]
  - Abdominal pain [Not Recovered/Not Resolved]
  - Abdominal pain upper [Not Recovered/Not Resolved]
  - Constipation [Not Recovered/Not Resolved]
  - Abdominal discomfort [Unknown]
